FAERS Safety Report 9190340 (Version 1)
Quarter: 2013Q1

REPORT INFORMATION
  Report Type: Spontaneous
  Country: US (occurrence: US)
  Receive Date: 20130326
  Receipt Date: 20130326
  Transmission Date: 20140127
  Serious: Yes (Hospitalization)
  Sender: FDA-Public Use
  Company Number: US-BAYER-2013-036080

PATIENT
  Age: 50 Year
  Sex: Female
  Weight: 83.45 kg

DRUGS (8)
  1. YAZ [Suspect]
  2. CELEXA [Concomitant]
  3. MOTRIN [Concomitant]
  4. PROTONIX [Concomitant]
  5. PRINIVIL [Concomitant]
  6. AMBIEN [Concomitant]
  7. TYLENOL [Concomitant]
  8. ZOCOR [Concomitant]

REACTIONS (1)
  - Cerebrovascular accident [None]
